FAERS Safety Report 23680732 (Version 1)
Quarter: 2024Q1

REPORT INFORMATION
  Report Type: Spontaneous
  Country: US (occurrence: US)
  Receive Date: 20240328
  Receipt Date: 20240328
  Transmission Date: 20240410
  Serious: No
  Sender: FDA-Public Use
  Company Number: US-TEVA-VS-3150531

PATIENT
  Age: 70 Year
  Sex: Female

DRUGS (1)
  1. DEXTROAMPHETAMINE SULFATE [Suspect]
     Active Substance: DEXTROAMPHETAMINE SULFATE
     Indication: Chronic fatigue syndrome
     Route: 048

REACTIONS (5)
  - Drug ineffective [Unknown]
  - Wrong dose [Unknown]
  - Malaise [Unknown]
  - Somnolence [Unknown]
  - Depression [Unknown]
